FAERS Safety Report 21722971 (Version 1)
Quarter: 2022Q4

REPORT INFORMATION
  Report Type: Spontaneous
  Country: IT (occurrence: IT)
  Receive Date: 20221213
  Receipt Date: 20221213
  Transmission Date: 20230113
  Serious: Yes (Other)
  Sender: FDA-Public Use
  Company Number: None

PATIENT

DRUGS (5)
  1. XCOPRI [Suspect]
     Active Substance: CENOBAMATE
     Indication: Partial seizures
     Dosage: 12,5 MG 1 CP/DIE
     Route: 048
  2. OXCARBAZEPINE [Concomitant]
     Active Substance: OXCARBAZEPINE
     Indication: Partial seizures
     Dosage: 300 MG MATTINA, 900MG SERA
     Route: 065
     Dates: start: 2001, end: 2022
  3. ACIDO VALPROICO                    /00228501/ [Concomitant]
     Indication: Partial seizures
     Dosage: 500 MG MORNING, 800 MG EVENING
     Route: 065
     Dates: start: 2014, end: 2022
  4. BRIVARACETAM [Concomitant]
     Active Substance: BRIVARACETAM
     Indication: Partial seizures
     Dosage: 75 MG MATTINA, 75MG SERA
     Route: 065
  5. LACOSAMIDE [Concomitant]
     Active Substance: LACOSAMIDE
     Indication: Partial seizures
     Dosage: 150 MG MATTINA, 200MG SERA
     Route: 065
     Dates: start: 201504, end: 2022

REACTIONS (2)
  - Angioedema [Recovered/Resolved]
  - Rash [Recovered/Resolved]

NARRATIVE: CASE EVENT DATE: 20221029
